FAERS Safety Report 25289234 (Version 2)
Quarter: 2025Q3

REPORT INFORMATION
  Report Type: Report from Study
  Country: US (occurrence: US)
  Receive Date: 20250509
  Receipt Date: 20250725
  Transmission Date: 20251021
  Serious: No
  Sender: Karo Pharma
  Company Number: US-Karo Pharma-2176454

PATIENT
  Age: 39 Year
  Sex: Male

DRUGS (5)
  1. TERBINAFINE [Suspect]
     Active Substance: TERBINAFINE
     Indication: Psoriasis
  2. KETOCONAZOLE [Suspect]
     Active Substance: KETOCONAZOLE
  3. HYDROCORTISONE [Suspect]
     Active Substance: HYDROCORTISONE
  4. CLOBETASOL [Suspect]
     Active Substance: CLOBETASOL
  5. TRIAMCINOLONE [Suspect]
     Active Substance: TRIAMCINOLONE

REACTIONS (20)
  - Macule [Unknown]
  - Therapy partial responder [Unknown]
  - Skin papilloma [Unknown]
  - Genital lesion [Unknown]
  - Skin lesion [Unknown]
  - Rash erythematous [Unknown]
  - Skin exfoliation [Unknown]
  - Skin hyperpigmentation [Unknown]
  - Skin plaque [Unknown]
  - Arthralgia [Unknown]
  - Rash macular [Unknown]
  - Product use in unapproved indication [Unknown]
  - Skin discolouration [Unknown]
  - Rash papular [Unknown]
  - Psoriasis [Unknown]
  - Peripheral swelling [Unknown]
  - Anogenital warts [Unknown]
  - Fungal infection [Unknown]
  - Dry skin [Unknown]
  - Tinea versicolour [Unknown]
